FAERS Safety Report 24833828 (Version 1)
Quarter: 2025Q1

REPORT INFORMATION
  Report Type: Spontaneous
  Country: US (occurrence: US)
  Receive Date: 20250112
  Receipt Date: 20250112
  Transmission Date: 20250409
  Serious: No
  Sender: ROCHE
  Company Number: US-ROCHE-10000177216

PATIENT
  Age: 82 Year
  Sex: Female

DRUGS (1)
  1. POLIVY [Suspect]
     Active Substance: POLATUZUMAB VEDOTIN-PIIQ
     Indication: B-cell lymphoma
     Route: 042

REACTIONS (1)
  - Infusion related reaction [Recovered/Resolved]
